FAERS Safety Report 6412005-X (Version None)
Quarter: 2009Q4

REPORT INFORMATION
  Report Type: 
  Country: None (occurrence: None)
  Receive Date: 20091023
  Receipt Date: 20091014
  Transmission Date: 20100525
  Serious: Yes (Other)
  Sender: FDA-Public Use
  Company Number: CA-JNJFOC-20091005305

PATIENT
  Sex: Female
  Weight: 96.5 kg

DRUGS (4)
  1. REMICADE [Suspect]
     Route: 042
     Dates: end: 20091014
  2. REMICADE [Suspect]
     Indication: CROHN'S DISEASE
     Route: 042
     Dates: end: 20091014
  3. BENADRYL [Concomitant]
     Indication: PREMEDICATION
     Route: 048
  4. ACETAMINOPHEN [Concomitant]
     Indication: PREMEDICATION
     Route: 048

REACTIONS (7)
  - HEART RATE INCREASED [None]
  - HYPOTENSION [None]
  - INFUSION RELATED REACTION [None]
  - PALLOR [None]
  - PULSE PRESSURE DECREASED [None]
  - THROAT TIGHTNESS [None]
  - URTICARIA [None]
